FAERS Safety Report 7170892-4 (Version None)
Quarter: 2010Q4

REPORT INFORMATION
  Report Type: 
  Country: None (occurrence: None)
  Receive Date: 20101217
  Receipt Date: 20101207
  Transmission Date: 20110411
  Serious: Yes (Death)
  Sender: FDA-Public Use
  Company Number: JP-ROCHE-738042

PATIENT
  Sex: Male
  Weight: 68 kg

DRUGS (14)
  1. AVASTIN [Suspect]
     Indication: COLON CANCER METASTATIC
     Route: 041
     Dates: start: 20090728, end: 20090728
  2. ELPLAT [Suspect]
     Indication: COLON CANCER METASTATIC
     Route: 041
     Dates: start: 20090728, end: 20090728
  3. FLUOROURACIL [Suspect]
     Indication: COLON CANCER METASTATIC
     Route: 040
     Dates: start: 20090728, end: 20090728
  4. FLUOROURACIL [Suspect]
     Dosage: NOTE: DOSAGE IS UNCERTAIN, ROUTE INTRAVENOUS DRIP
     Route: 040
     Dates: start: 20090728, end: 20090730
  5. LEVOFOLINATE [Suspect]
     Indication: COLON CANCER METASTATIC
     Route: 041
     Dates: start: 20090728, end: 20090728
  6. DECADRON [Concomitant]
     Route: 042
     Dates: start: 20090728, end: 20090728
  7. KYTRIL [Concomitant]
     Route: 042
     Dates: start: 20090728, end: 20090728
  8. OLMETEC [Concomitant]
     Route: 048
     Dates: start: 20090805
  9. OMEPRAL [Concomitant]
     Route: 048
     Dates: start: 20090805
  10. MAGLAX [Concomitant]
     Route: 048
     Dates: start: 20090710, end: 20090805
  11. DEPAS [Concomitant]
     Route: 048
     Dates: start: 20090709, end: 20090805
  12. LOXONIN [Concomitant]
     Route: 048
     Dates: start: 20090710, end: 20090805
  13. PRIMPERAN TAB [Concomitant]
     Dosage: TAKEN AS NEEDED. TAKEN FOR FEELING QUEASY.
     Route: 048
     Dates: start: 20090728
  14. NAUZELIN [Concomitant]
     Dosage: TAKEN AS NEEDED. TAKEN FOR FEELING QUEASY
     Route: 054
     Dates: start: 20090728

REACTIONS (9)
  - CONSTIPATION [None]
  - DECREASED APPETITE [None]
  - DELIRIUM [None]
  - DIVERTICULAR PERFORATION [None]
  - HEPATIC ENZYME INCREASED [None]
  - NAUSEA [None]
  - PERITONITIS [None]
  - PLEURAL EFFUSION [None]
  - TACHYCARDIA [None]
